FAERS Safety Report 8293182-5 (Version None)
Quarter: 2012Q2

REPORT INFORMATION
  Report Type: 
  Country: None (occurrence: None)
  Receive Date: 20120417
  Receipt Date: 20110519
  Transmission Date: 20120825
  Serious: No
  Sender: FDA-Public Use
  Company Number: US-ASTRAZENECA-2011SE30680

PATIENT
  Age: 57 Year
  Sex: Female
  Weight: 68 kg

DRUGS (2)
  1. NEXIUM [Suspect]
     Route: 048
  2. VITAMIN D [Concomitant]

REACTIONS (2)
  - GASTROINTESTINAL MOTILITY DISORDER [None]
  - INCORRECT DRUG ADMINISTRATION DURATION [None]
